APPROVED DRUG PRODUCT: IBUTILIDE FUMARATE
Active Ingredient: IBUTILIDE FUMARATE
Strength: 0.1MG/ML
Dosage Form/Route: INJECTABLE;INJECTION
Application: A090924 | Product #001
Applicant: MYLAN INSTITUTIONAL LLC
Approved: Jan 11, 2010 | RLD: No | RS: No | Type: DISCN